FAERS Safety Report 20897924 (Version 4)
Quarter: 2022Q3

REPORT INFORMATION
  Report Type: Spontaneous
  Country: US (occurrence: US)
  Receive Date: 20220531
  Receipt Date: 20220719
  Transmission Date: 20221026
  Serious: No
  Sender: FDA-Public Use
  Company Number: US-PFIZER INC-202200771005

PATIENT
  Age: 59 Year
  Sex: Female
  Weight: 68.95 kg

DRUGS (1)
  1. PAXLOVID [Suspect]
     Active Substance: NIRMATRELVIR\RITONAVIR
     Indication: COVID-19 treatment
     Dosage: [PF-07321332 300 MG]/[RITONAVIR 100 MG]; 2X/DAY
     Route: 048
     Dates: start: 20220521, end: 20220523

REACTIONS (8)
  - Dysgeusia [Unknown]
  - Product taste abnormal [Unknown]
  - Abdominal pain upper [Unknown]
  - Diarrhoea [Unknown]
  - Pyrexia [Unknown]
  - Nasal congestion [Unknown]
  - Symptom recurrence [Unknown]
  - Pain [Unknown]

NARRATIVE: CASE EVENT DATE: 20220522
